FAERS Safety Report 4666691-5 (Version None)
Quarter: 2005Q2

REPORT INFORMATION
  Report Type: 
  Country: None (occurrence: None)
  Receive Date: 20050518
  Receipt Date: 20050509
  Transmission Date: 20051028
  Serious: Yes (Hospitalization, Other)
  Sender: FDA-Public Use
  Company Number: HQWYE622810MAY05

PATIENT
  Age: 62 Year
  Sex: Male

DRUGS (9)
  1. RAPAMUNE [Suspect]
     Indication: PROPHYLAXIS AGAINST TRANSPLANT REJECTION
     Dosage: 8 MG 1X PER 1 DAY; ORAL
     Route: 048
     Dates: start: 19990128
  2. NEORAL [Concomitant]
  3. NEORAL [Concomitant]
  4. GEMFIBROZIL [Concomitant]
  5. BACTRIM [Concomitant]
  6. TENORMIN [Concomitant]
  7. PEPDINE (FAMOTIDINE) [Concomitant]
  8. PRAZOSIN HCL [Concomitant]
  9. NIFEDIPINE [Concomitant]

REACTIONS (2)
  - COMPLICATIONS OF TRANSPLANTED KIDNEY [None]
  - GRAFT DYSFUNCTION [None]
